FAERS Safety Report 6634096-3 (Version None)
Quarter: 2010Q1

REPORT INFORMATION
  Report Type: 
  Country: None (occurrence: None)
  Receive Date: 20100315
  Receipt Date: 20100304
  Transmission Date: 20100710
  Serious: Yes (Other)
  Sender: FDA-Public Use
  Company Number: US-ASTRAZENECA-2009SE28603

PATIENT
  Age: 8 Month
  Sex: Male

DRUGS (2)
  1. PULMICORT RESPULES [Suspect]
     Route: 055
     Dates: start: 20091112
  2. XOPENEX [Concomitant]
     Indication: PULMONARY ARTERY DILATATION

REACTIONS (1)
  - TOOTH DISCOLOURATION [None]
